FAERS Safety Report 15392017 (Version 3)
Quarter: 2019Q2

REPORT INFORMATION
  Report Type: Spontaneous
  Country: US (occurrence: US)
  Receive Date: 20180917
  Receipt Date: 20190426
  Transmission Date: 20190711
  Serious: No
  Sender: FDA-Public Use
  Company Number: US-PFIZER INC-2018373179

PATIENT
  Age: 50 Year
  Sex: Female

DRUGS (2)
  1. EUCRISA [Suspect]
     Active Substance: CRISABOROLE
     Indication: PRURITUS
  2. EUCRISA [Suspect]
     Active Substance: CRISABOROLE
     Indication: CONJUNCTIVITIS ALLERGIC
     Dosage: UNK, 2X/DAY
     Route: 061
     Dates: start: 201808

REACTIONS (4)
  - Application site pain [Unknown]
  - Burning sensation [Unknown]
  - Product use in unapproved indication [Unknown]
  - Erythema [Unknown]

NARRATIVE: CASE EVENT DATE: 201808
